FAERS Safety Report 22595334 (Version 1)
Quarter: 2023Q2

REPORT INFORMATION
  Report Type: Report from Study
  Country: IN (occurrence: None)
  Receive Date: 20230613
  Receipt Date: 20230613
  Transmission Date: 20230722
  Serious: Yes (Death, Hospitalization, Other)
  Sender: FDA-Public Use
  Company Number: 2023A134818

PATIENT
  Age: 25306 Day
  Sex: Female

DRUGS (1)
  1. TAGRISSO [Suspect]
     Active Substance: OSIMERTINIB
     Indication: Lung cancer metastatic
     Route: 048

REACTIONS (7)
  - Death [Fatal]
  - Lower limb fracture [Unknown]
  - Hand fracture [Unknown]
  - Cerebrospinal fluid leakage [Unknown]
  - Cough [Unknown]
  - Oxygen saturation decreased [Unknown]
  - Amnesia [Unknown]

NARRATIVE: CASE EVENT DATE: 20230415
